FAERS Safety Report 9929469 (Version 2)
Quarter: 2014Q2

REPORT INFORMATION
  Report Type: Spontaneous
  Country: JP (occurrence: JP)
  Receive Date: 20140227
  Receipt Date: 20140401
  Transmission Date: 20141212
  Serious: Yes (Hospitalization)
  Sender: FDA-Public Use
  Company Number: PHHY2014JP022260

PATIENT
  Age: 60 Year
  Sex: Female

DRUGS (1)
  1. MINOCYCLINE [Suspect]
     Indication: CYSTITIS
     Route: 048

REACTIONS (18)
  - Myocarditis [Recovered/Resolved]
  - Endocarditis [Recovered/Resolved]
  - Pericardial effusion [Recovered/Resolved]
  - Pleural effusion [Recovered/Resolved]
  - Blood pressure decreased [Recovered/Resolved]
  - Drug reaction with eosinophilia and systemic symptoms [Recovered/Resolved]
  - Drug eruption [Recovered/Resolved]
  - Rash erythematous [Recovered/Resolved]
  - Pyrexia [Recovered/Resolved]
  - Erythema [Recovered/Resolved]
  - Generalised oedema [Recovered/Resolved]
  - Lymphadenopathy [Recovered/Resolved]
  - Periorbital oedema [Recovered/Resolved]
  - Excoriation [Recovered/Resolved]
  - Skin exfoliation [Recovered/Resolved]
  - Macule [Recovered/Resolved]
  - Hepatic function abnormal [Recovered/Resolved]
  - Intracardiac mass [Recovered/Resolved]
